FAERS Safety Report 12630984 (Version 2)
Quarter: 2016Q3

REPORT INFORMATION
  Report Type: Spontaneous
  Country: US (occurrence: US)
  Receive Date: 20160808
  Receipt Date: 20160808
  Transmission Date: 20161109
  Serious: No
  Sender: FDA-Public Use
  Company Number: US-BEH-2015051729

PATIENT
  Sex: Female
  Weight: 73 kg

DRUGS (35)
  1. CLARITIN [Concomitant]
     Active Substance: LORATADINE
  2. PARICALCITOL. [Concomitant]
     Active Substance: PARICALCITOL
  3. LOVENOX [Concomitant]
     Active Substance: ENOXAPARIN SODIUM
  4. EPIPEN [Concomitant]
     Active Substance: EPINEPHRINE
  5. LASIX [Concomitant]
     Active Substance: FUROSEMIDE
  6. TYLENOL EXTRA STRENGTH [Concomitant]
     Active Substance: ACETAMINOPHEN
  7. ZOLOFT [Concomitant]
     Active Substance: SERTRALINE HYDROCHLORIDE
  8. GLYCERYL TRINITRATE [Concomitant]
     Active Substance: NITROGLYCERIN
     Route: 061
  9. AUGMENTIN [Concomitant]
     Active Substance: AMOXICILLIN\CLAVULANATE POTASSIUM
  10. LEVOCETIRIZINE [Concomitant]
     Active Substance: LEVOCETIRIZINE
  11. OXYGEN. [Concomitant]
     Active Substance: OXYGEN
  12. PROAIR HFA [Concomitant]
     Active Substance: ALBUTEROL SULFATE
  13. TRAMADOL HCL [Concomitant]
     Active Substance: TRAMADOL HYDROCHLORIDE
  14. FLEXERIL [Concomitant]
     Active Substance: CYCLOBENZAPRINE HYDROCHLORIDE
  15. PREVACID [Concomitant]
     Active Substance: LANSOPRAZOLE
  16. XYZAL [Concomitant]
     Active Substance: LEVOCETIRIZINE DIHYDROCHLORIDE
  17. NASONEX [Concomitant]
     Active Substance: MOMETASONE FUROATE
     Route: 045
  18. NEUTRASAL [Concomitant]
     Active Substance: CALCIUM CHLORIDE\POTASSIUM CHLORIDE\SODIUM CHLORIDE
  19. ATENOLOL. [Concomitant]
     Active Substance: ATENOLOL
  20. PROBIOTIC [Concomitant]
     Active Substance: PROBIOTICS NOS
  21. HIZENTRA [Suspect]
     Active Substance: HUMAN IMMUNOGLOBULIN G
     Indication: IMMUNODEFICIENCY COMMON VARIABLE
     Route: 058
  22. SINGULAIR [Concomitant]
     Active Substance: MONTELUKAST SODIUM
  23. RAYOS [Concomitant]
     Active Substance: PREDNISONE
  24. PREDNISONE. [Concomitant]
     Active Substance: PREDNISONE
  25. VITAMIN D [Concomitant]
     Active Substance: CHOLECALCIFEROL
  26. XOLAIR [Concomitant]
     Active Substance: OMALIZUMAB
  27. HIZENTRA [Suspect]
     Active Substance: HUMAN IMMUNOGLOBULIN G
  28. OCUVITE [Concomitant]
     Active Substance: VITAMINS
  29. DIPHENHYDRAMINE. [Concomitant]
     Active Substance: DIPHENHYDRAMINE
  30. LMX [Concomitant]
     Active Substance: LIDOCAINE
  31. NYSTATIN TRIAMCINOLONE [Concomitant]
     Route: 061
  32. NEURONTIN [Concomitant]
     Active Substance: GABAPENTIN
  33. ALVESCO [Concomitant]
     Active Substance: CICLESONIDE
  34. SYNTHROID [Concomitant]
     Active Substance: LEVOTHYROXINE SODIUM
  35. ALBUTEROL SULFATE HFA [Concomitant]

REACTIONS (5)
  - Chills [Unknown]
  - Hypersensitivity [Unknown]
  - Infusion site swelling [Unknown]
  - Body temperature decreased [Unknown]
  - Infusion site warmth [Unknown]
